FAERS Safety Report 4288109-7 (Version None)
Quarter: 2004Q1

REPORT INFORMATION
  Report Type: 
  Country: None (occurrence: None)
  Receive Date: 20040209
  Receipt Date: 20030818
  Transmission Date: 20041129
  Serious: No
  Sender: FDA-Public Use
  Company Number: US-GLAXOSMITHKLINE-A0422322A

PATIENT
  Age: 44 Year
  Sex: Male

DRUGS (5)
  1. PAXIL [Suspect]
     Route: 048
     Dates: start: 20030721
  2. MONOPRIL [Concomitant]
  3. GLUCOVANCE [Concomitant]
  4. LIPITOR [Concomitant]
  5. ACTOS [Suspect]
     Route: 065
     Dates: end: 20030701

REACTIONS (2)
  - ANAEMIA [None]
  - ASTHENIA [None]
